FAERS Safety Report 6830803-5 (Version None)
Quarter: 2010Q2

REPORT INFORMATION
  Report Type: 
  Country: None (occurrence: None)
  Receive Date: 20100520
  Receipt Date: 20090408
  Transmission Date: 20101027
  Serious: Yes (Other)
  Sender: FDA-Public Use
  Company Number: 2009196086

PATIENT
  Age: 77 Year
  Sex: Female
  Weight: 78 kg

DRUGS (4)
  1. PROVERA [Suspect]
     Indication: MENOPAUSAL SYMPTOMS
     Dosage: 2.5 MG
     Dates: start: 19970101
  2. ESTRACE [Suspect]
     Indication: MENOPAUSAL SYMPTOMS
     Dates: start: 19970101
  3. PREMPRO [Suspect]
     Indication: MENOPAUSAL SYMPTOMS
     Dosage: 0.625/2 5 MG
     Dates: start: 19980101, end: 20030101
  4. LISINOPRIL [Concomitant]

REACTIONS (1)
  - BREAST CANCER FEMALE [None]
